FAERS Safety Report 21997346 (Version 3)
Quarter: 2023Q2

REPORT INFORMATION
  Report Type: Spontaneous
  Country: JP (occurrence: JP)
  Receive Date: 20230216
  Receipt Date: 20230428
  Transmission Date: 20230721
  Serious: Yes (Life-Threatening, Hospitalization, Other)
  Sender: FDA-Public Use
  Company Number: JP-BAXTER-2022BAX031303

PATIENT
  Age: 53 Year
  Sex: Male
  Weight: 66.5 kg

DRUGS (26)
  1. REGUNEAL LCA [Suspect]
     Active Substance: CALCIUM CHLORIDE\DEXTROSE MONOHYDRATE\HYDROCHLORIC ACID\MAGNESIUM CHLORIDE\SODIUM BICARBONATE\SODIUM
     Indication: Chronic kidney disease
     Dosage: UNK
     Route: 033
     Dates: start: 20181019, end: 20201019
  2. REGUNEAL LCA [Suspect]
     Active Substance: CALCIUM CHLORIDE\DEXTROSE MONOHYDRATE\HYDROCHLORIC ACID\MAGNESIUM CHLORIDE\SODIUM BICARBONATE\SODIUM
     Indication: Peritoneal dialysis
  3. EXTRANEAL [Suspect]
     Active Substance: CALCIUM CHLORIDE\ICODEXTRIN\MAGNESIUM CHLORIDE\SODIUM CHLORIDE\SODIUM LACTATE
     Indication: Peritoneal dialysis
     Dosage: UNK
     Route: 033
     Dates: start: 20190218, end: 20201019
  4. NIFEDIPINE [Concomitant]
     Active Substance: NIFEDIPINE
     Dosage: CR 20 MG, 2 TABLETS ONCE DAILY AFTER DINNER
     Route: 048
     Dates: start: 20200924
  5. AZILSARTAN KAMEDOXOMIL [Concomitant]
     Active Substance: AZILSARTAN KAMEDOXOMIL
     Dosage: 40 MG 1 TABLET ONCE DAILY AFTER BREAKFAST
     Route: 048
     Dates: start: 20200924
  6. BISOPROLOL [Concomitant]
     Active Substance: BISOPROLOL
     Dosage: 5 MG 1 TABLET ONCE DAILY AFTER BREAKFAST
     Route: 048
     Dates: start: 20200924
  7. FUROSEMIDE [Concomitant]
     Active Substance: FUROSEMIDE
     Dosage: 20 MG 8 TABLETS TWICE DAILY AFTER BREAKFAST
     Route: 048
     Dates: start: 20200924
  8. FUROSEMIDE [Concomitant]
     Active Substance: FUROSEMIDE
     Dosage: 40 MG QD 2 TABLETS, AFTER DINNER
     Route: 050
     Dates: start: 20200924
  9. HYDROCHLOROTHIAZIDE [Concomitant]
     Active Substance: HYDROCHLOROTHIAZIDE
     Dosage: 12.5 MG, 1 TABLET ONCE DAILY AFTER BREAKFAST
     Route: 048
     Dates: start: 20200924
  10. SAMSCA [Concomitant]
     Active Substance: TOLVAPTAN
     Dosage: 15 MG 1TABLET ONCE DAILY AFTER BREAKFAST
     Route: 048
     Dates: start: 20200924
  11. SPIRONOLACTONE [Concomitant]
     Active Substance: SPIRONOLACTONE
     Dosage: 25 MG 1 TABLET ONCE DAILY AFTER BREAKFAST
     Route: 048
     Dates: start: 20200924
  12. FEBUXOSTAT [Concomitant]
     Active Substance: FEBUXOSTAT
     Dosage: 10 MG, 2 TABLETS ONCE DAILY AFTER BREAKFAST
     Route: 048
     Dates: start: 20200924
  13. ATORVASTATIN CALCIUM TRIHYDRATE [Concomitant]
     Active Substance: ATORVASTATIN CALCIUM TRIHYDRATE
     Dosage: 10 MG 0.5 TABLETS, ONCE DAILY AFTER BREAKFAST
     Route: 048
     Dates: start: 20200924
  14. EVOCALCET [Concomitant]
     Active Substance: EVOCALCET
     Dosage: 1 MG 1 TABLET ONCE DAILY AFTER BREAKFAST
     Route: 048
     Dates: start: 20200924
  15. CALCIUM CARBONATE [Concomitant]
     Active Substance: CALCIUM CARBONATE
     Dosage: 500 MG 2 TABLETS TWICE DAILY IMMEDIATELY AFTER BREAKFAST AND DINNER
     Route: 048
     Dates: start: 20200924
  16. REMITCH OD [Concomitant]
     Dosage: 2.5 MCG 2 TABLETS ONCE DAILY AFTER DINNER
     Route: 048
     Dates: start: 20200924
  17. CHLORPHENIRAMINE [Concomitant]
     Active Substance: CHLORPHENIRAMINE
     Dosage: 2 MG, QD, 1 TABLET, BEFORE BEDTME
     Route: 048
     Dates: start: 20200924
  18. LORATADINE [Concomitant]
     Active Substance: LORATADINE
     Dosage: 10 MG,1 TABLET ONCE DAILY AFTER DINNER
     Route: 048
     Dates: start: 20200924
  19. LANSOPRAZOLE [Concomitant]
     Active Substance: LANSOPRAZOLE
     Dosage: 15 MG 1 TABLET ONCE DAILY AFTER BREAKFAST
     Route: 048
     Dates: start: 20200924
  20. INSULIN GLULISINE [Concomitant]
     Active Substance: INSULIN GLULISINE
     Route: 048
  21. INSULIN DEGLUDEC [Concomitant]
     Active Substance: INSULIN DEGLUDEC
     Route: 048
  22. ACETAMINOPHEN\TRAMADOL HYDROCHLORIDE [Concomitant]
     Active Substance: ACETAMINOPHEN\TRAMADOL HYDROCHLORIDE
     Dosage: 1 TABLET ONCE DAILY AFTER DINNER
     Route: 050
     Dates: start: 20200924
  23. DIFLORASONE DIACETATE [Concomitant]
     Active Substance: DIFLORASONE DIACETATE
     Dosage: 0.05 % (5 G) CREAM, 1 TUBE, 1 APPLICATION DAILY, FOR SITES OF ITCHING
     Route: 061
     Dates: start: 20200924
  24. MIYA-BM [Concomitant]
     Active Substance: CLOSTRIDIUM BUTYRICUM SPORES STRAIN M-55
     Dosage: 2 TABLETS TWICE DAILY AFTER BREAKFAST AND DINNER
     Route: 048
     Dates: start: 20200924
  25. FERRIC CITRATE ANHYDROUS [Concomitant]
     Active Substance: FERRIC CITRATE ANHYDROUS
     Dosage: 250 MG 1 TABLET TWICE DAILY IMMEDIATELY AFTER BREAKFAST AND DINNER
     Route: 065
     Dates: start: 20200924
  26. POLARAMINE [Concomitant]
     Active Substance: DEXCHLORPHENIRAMINE MALEATE
     Dosage: 2 MG 1TABLET ONCE DAILY BEFORE BEDTIME
     Route: 048
     Dates: start: 20200924

REACTIONS (10)
  - Superior mesenteric artery dissection [Recovered/Resolved]
  - Intestinal ischaemia [Recovered/Resolved]
  - Abdominal pain upper [Recovered/Resolved]
  - Abdominal pain [Recovered/Resolved]
  - Disease recurrence [Recovered/Resolved]
  - Cold sweat [Recovered/Resolved]
  - Gastritis bacterial [Recovered/Resolved]
  - Nausea [Recovered/Resolved]
  - Abdominal tenderness [Recovered/Resolved]
  - Vasospasm [Recovered/Resolved]

NARRATIVE: CASE EVENT DATE: 20201015
